FAERS Safety Report 9419382 (Version 2)
Quarter: 2013Q3

REPORT INFORMATION
  Report Type: Spontaneous
  Country: DE (occurrence: DE)
  Receive Date: 20130723
  Receipt Date: 20130822
  Transmission Date: 20140515
  Serious: Yes (Hospitalization)
  Sender: FDA-Public Use
  Company Number: TPG2013A00804

PATIENT
  Age: 93 Year
  Sex: Female

DRUGS (1)
  1. EDARBI (AZILSARTAN MEDOXOMIL) [Suspect]
     Indication: ESSENTIAL HYPERTENSION
     Route: 048
     Dates: start: 20120717, end: 20130620

REACTIONS (4)
  - Blood pressure inadequately controlled [None]
  - Diabetic foot [None]
  - Weight increased [None]
  - Toe amputation [None]
